FAERS Safety Report 16200564 (Version 1)
Quarter: 2019Q2

REPORT INFORMATION
  Report Type: Spontaneous
  Country: US (occurrence: US)
  Receive Date: 20190416
  Receipt Date: 20190416
  Transmission Date: 20190711
  Serious: No
  Sender: FDA-Public Use
  Company Number: US-009507513-1904USA006892

PATIENT
  Sex: Male

DRUGS (1)
  1. INTRON A [Suspect]
     Active Substance: INTERFERON ALFA-2B
     Indication: HAEMORRHAGE
     Dosage: 0.5 MILLILITER, TID, (18 MIU)
     Route: 058
     Dates: start: 20180329

REACTIONS (1)
  - Product dose omission [Unknown]
